FAERS Safety Report 8220891-6 (Version None)
Quarter: 2012Q1

REPORT INFORMATION
  Report Type: 
  Country: None (occurrence: None)
  Receive Date: 20120314
  Receipt Date: 20120302
  Transmission Date: 20120608
  Serious: Yes (Hospitalization, Other)
  Sender: FDA-Public Use
  Company Number: US-ELI_LILLY_AND_COMPANY-US201203001134

PATIENT
  Sex: Female

DRUGS (15)
  1. FENTANYL [Concomitant]
  2. LIDODERM [Concomitant]
  3. LEVOTHYROXINE SODIUM [Concomitant]
     Indication: THYROID DISORDER
  4. LIPITOR [Concomitant]
  5. VITAMIN B COMPLEX CAP [Concomitant]
  6. DEXLANSOPRAZOLE [Concomitant]
  7. NEURONTIN [Concomitant]
  8. METHADONE HCL [Concomitant]
  9. PRISTIQ [Concomitant]
  10. FORTEO [Suspect]
     Dosage: 20 UG, QD
  11. FORTEO [Suspect]
     Indication: OSTEOPOROSIS
     Dosage: 20 UG, QD
     Dates: start: 20090101
  12. BUPROPION HCL [Concomitant]
  13. HYDROXYCHLOROQUINE SULFATE [Concomitant]
     Indication: BONE DISORDER
  14. TRAZODONE HCL [Concomitant]
  15. VITAMIN B-12 [Concomitant]

REACTIONS (2)
  - DRUG DOSE OMISSION [None]
  - GALLBLADDER DISORDER [None]
